FAERS Safety Report 8956540 (Version 1)
Quarter: 2012Q4

REPORT INFORMATION
  Report Type: 
  Country: BR (occurrence: BR)
  Receive Date: 20121210
  Receipt Date: 20121210
  Transmission Date: 20130627
  Serious: Yes (Hospitalization)
  Sender: FDA-Public Use
  Company Number: BR-PFIZER INC-2012306694

PATIENT
  Age: 75 Year
  Sex: Female
  Weight: 90 kg

DRUGS (1)
  1. LIPITOR [Suspect]
     Dosage: 20 mg, UNK
     Dates: start: 2002

REACTIONS (1)
  - Cardiac disorder [Unknown]
